FAERS Safety Report 19084351 (Version 1)
Quarter: 2021Q2

REPORT INFORMATION
  Report Type: Other
  Country: GR (occurrence: GR)
  Receive Date: 20210401
  Receipt Date: 20210401
  Transmission Date: 20210717
  Serious: Yes (Other)
  Sender: FDA-Public Use
  Company Number: GR-EMD SERONO-9227838

PATIENT
  Age: 59 Year
  Sex: Male

DRUGS (1)
  1. AVELUMAB [Suspect]
     Active Substance: AVELUMAB
     Indication: BRAIN NEOPLASM MALIGNANT

REACTIONS (3)
  - Pulmonary sarcoidosis [Recovered/Resolved]
  - Cutaneous sarcoidosis [Recovered/Resolved]
  - Off label use [Unknown]
